FAERS Safety Report 19081302 (Version 1)
Quarter: 2021Q1

REPORT INFORMATION
  Report Type: Spontaneous
  Country: US (occurrence: US)
  Receive Date: 20210331
  Receipt Date: 20210331
  Transmission Date: 20210420
  Serious: No
  Sender: FDA-Public Use
  Company Number: US-ELI_LILLY_AND_COMPANY-US202103013928

PATIENT
  Sex: Female

DRUGS (3)
  1. INSULIN LISPRO LILLY [Suspect]
     Active Substance: INSULIN LISPRO
     Indication: DIABETES MELLITUS
     Dosage: 20 U, UNKNOWN
     Route: 058
  2. INSULIN LISPRO LILLY [Suspect]
     Active Substance: INSULIN LISPRO
     Dosage: 20 UNK, UNKNOWN
     Route: 058
  3. LANTUS [Concomitant]
     Active Substance: INSULIN GLARGINE
     Indication: DIABETES MELLITUS
     Dosage: 50 U

REACTIONS (7)
  - Dizziness [Unknown]
  - Blood glucose increased [Not Recovered/Not Resolved]
  - Accidental underdose [Unknown]
  - Sciatica [Not Recovered/Not Resolved]
  - Arthritis [Unknown]
  - Incorrect product administration duration [Unknown]
  - Asthenia [Not Recovered/Not Resolved]
